FAERS Safety Report 8613949-0 (Version None)
Quarter: 2012Q3

REPORT INFORMATION
  Report Type: 
  Country: None (occurrence: None)
  Receive Date: 20120823
  Receipt Date: 20120818
  Transmission Date: 20120928
  Serious: No
  Sender: FDA-Public Use
  Company Number: US-PFIZER INC-2012203426

PATIENT
  Age: 75 Year
  Sex: Female
  Weight: 54.422 kg

DRUGS (5)
  1. LYRICA [Suspect]
     Indication: NERVE COMPRESSION
  2. LYRICA [Suspect]
     Indication: BACK PAIN
  3. LYRICA [Suspect]
     Indication: BURSITIS
  4. LYRICA [Suspect]
     Indication: BACK DISORDER
     Dosage: 75 MG, UNK
     Route: 048
     Dates: start: 20120817
  5. LYRICA [Suspect]
     Indication: INTERVERTEBRAL DISC PROTRUSION

REACTIONS (7)
  - FEELING HOT [None]
  - SOMNOLENCE [None]
  - ABDOMINAL DISCOMFORT [None]
  - DRUG INTOLERANCE [None]
  - ULCER [None]
  - HYPERHIDROSIS [None]
  - DIARRHOEA [None]
